FAERS Safety Report 4594028-9 (Version None)
Quarter: 2005Q1

REPORT INFORMATION
  Report Type: 
  Country: None (occurrence: None)
  Receive Date: 20050218
  Receipt Date: 20050208
  Transmission Date: 20050727
  Serious: Yes (Other)
  Sender: FDA-Public Use
  Company Number: 2005017473

PATIENT
  Age: 69 Year
  Sex: Male

DRUGS (1)
  1. XALATAN [Suspect]
     Indication: GLAUCOMA
     Dosage: 1 DROP, INTRAOCULAR
     Route: 031
     Dates: start: 20010216

REACTIONS (3)
  - CEREBRAL INFARCTION [None]
  - CORNEAL OPACITY [None]
  - HEMIANOPIA HOMONYMOUS [None]
